FAERS Safety Report 26149175 (Version 1)
Quarter: 2025Q4

REPORT INFORMATION
  Report Type: Spontaneous
  Country: US (occurrence: US)
  Receive Date: 20251212
  Receipt Date: 20251212
  Transmission Date: 20260117
  Serious: Yes (Hospitalization, Other)
  Sender: AJANTA PHARMA USA INC
  Company Number: US-AJANTA-2025AJA00167

PATIENT
  Age: 51 Year
  Sex: Male

DRUGS (11)
  1. VARENICLINE TARTRATE [Suspect]
     Active Substance: VARENICLINE TARTRATE
     Indication: Smoking cessation therapy
  2. VARENICLINE TARTRATE [Suspect]
     Active Substance: VARENICLINE TARTRATE
     Dosage: DOSE INCREASED
  3. LURASIDONE [Concomitant]
     Active Substance: LURASIDONE
     Indication: Schizoaffective disorder bipolar type
  4. OLANZAPINE [Concomitant]
     Active Substance: OLANZAPINE
     Indication: Schizoaffective disorder bipolar type
  5. HYDROXYZINE [Concomitant]
     Active Substance: HYDROXYZINE HYDROCHLORIDE
     Indication: Schizoaffective disorder bipolar type
  6. HYDROXYZINE [Concomitant]
     Active Substance: HYDROXYZINE HYDROCHLORIDE
  7. LAMOTRIGINE [Concomitant]
     Active Substance: LAMOTRIGINE
     Indication: Schizoaffective disorder bipolar type
  8. LAMOTRIGINE [Concomitant]
     Active Substance: LAMOTRIGINE
  9. DULOXETINE [Concomitant]
     Active Substance: DULOXETINE
     Indication: Schizoaffective disorder bipolar type
  10. DULOXETINE [Concomitant]
     Active Substance: DULOXETINE
  11. DULOXETINE [Concomitant]
     Active Substance: DULOXETINE

REACTIONS (4)
  - Neuroleptic malignant syndrome [Recovered/Resolved]
  - Withdrawal syndrome [Recovered/Resolved]
  - Irritability [Not Recovered/Not Resolved]
  - Insomnia [Unknown]
